FAERS Safety Report 20346569 (Version 7)
Quarter: 2022Q3

REPORT INFORMATION
  Report Type: Report from Study
  Country: CA (occurrence: CA)
  Receive Date: 20220118
  Receipt Date: 20220718
  Transmission Date: 20221027
  Serious: Yes (Death, Hospitalization, Other)
  Sender: FDA-Public Use
  Company Number: CA-OTSUKA-2021_020275

PATIENT
  Age: 72 Year
  Sex: Male

DRUGS (10)
  1. CEDAZURIDINE\DECITABINE [Suspect]
     Active Substance: CEDAZURIDINE\DECITABINE
     Indication: Myelodysplastic syndrome
     Dosage: (35 MG OF DECITABINE AND 100 MG OF CEDAZURIDINE)
     Route: 065
     Dates: start: 20210609
  2. CEDAZURIDINE\DECITABINE [Suspect]
     Active Substance: CEDAZURIDINE\DECITABINE
     Dosage: ON DAY 1, DAY 3 AND DAY 5
     Route: 065
     Dates: start: 20211004
  3. CEDAZURIDINE\DECITABINE [Suspect]
     Active Substance: CEDAZURIDINE\DECITABINE
     Dosage: QD (ON DAYS 1-3) OF 8 WEEKS CYCLE
     Route: 065
     Dates: end: 20220405
  4. BUPROPION [Concomitant]
     Active Substance: BUPROPION
     Indication: Product used for unknown indication
     Dosage: UNK
     Route: 065
  5. HYDROMORPHONE [Concomitant]
     Active Substance: HYDROMORPHONE
     Indication: Product used for unknown indication
     Dosage: UNK
     Route: 065
  6. METOCLOPRAMIDE [Concomitant]
     Active Substance: METOCLOPRAMIDE
     Indication: Nausea
     Dosage: UNK
     Route: 065
  7. NYSTATIN [Concomitant]
     Active Substance: NYSTATIN
     Indication: Product used for unknown indication
     Dosage: UNK
     Route: 065
  8. PANTOPRAZOLE [Concomitant]
     Active Substance: PANTOPRAZOLE
     Indication: Product used for unknown indication
     Dosage: UNK
     Route: 065
  9. TRAZODONE [Concomitant]
     Active Substance: TRAZODONE HYDROCHLORIDE
     Indication: Product used for unknown indication
     Dosage: UNK
     Route: 065
  10. ONDANSETRON [Concomitant]
     Active Substance: ONDANSETRON
     Indication: Nausea
     Dosage: UNK
     Route: 065

REACTIONS (16)
  - Septic shock [Fatal]
  - Blood product transfusion dependent [Unknown]
  - Terminal state [Unknown]
  - Epiglottitis [Recovered/Resolved]
  - Subdural haematoma [Recovered/Resolved]
  - Subdural haematoma [Unknown]
  - Perineal cellulitis [Not Recovered/Not Resolved]
  - Platelet count decreased [Unknown]
  - Full blood count abnormal [Unknown]
  - Dysgeusia [Unknown]
  - General physical health deterioration [Unknown]
  - Eastern Cooperative Oncology Group performance status worsened [Unknown]
  - Blast cell count decreased [Unknown]
  - Fatigue [Unknown]
  - Diarrhoea [Unknown]
  - Product use issue [Unknown]

NARRATIVE: CASE EVENT DATE: 20210609
